FAERS Safety Report 22330925 (Version 1)
Quarter: 2023Q2

REPORT INFORMATION
  Report Type: Spontaneous
  Country: US (occurrence: US)
  Receive Date: 20230517
  Receipt Date: 20230517
  Transmission Date: 20230721
  Serious: Yes (Hospitalization, Other)
  Sender: FDA-Public Use
  Company Number: US-HALEON-USCH2023020755

PATIENT
  Sex: Female

DRUGS (1)
  1. TUMS [Suspect]
     Active Substance: CALCIUM CARBONATE
     Indication: Product used for unknown indication
     Dosage: 13 DF

REACTIONS (5)
  - Abortion spontaneous [Unknown]
  - Cardiac failure [Unknown]
  - Exposure during pregnancy [Unknown]
  - Extra dose administered [Unknown]
  - Product label confusion [Unknown]
